FAERS Safety Report 25033731 (Version 1)
Quarter: 2025Q1

REPORT INFORMATION
  Report Type: Report from Study
  Country: US (occurrence: US)
  Receive Date: 20250303
  Receipt Date: 20250303
  Transmission Date: 20250409
  Serious: Yes (Hospitalization)
  Sender: BIOGEN
  Company Number: US-BIOGEN-2025BI01302425

PATIENT
  Sex: Female

DRUGS (1)
  1. SKYCLARYS [Suspect]
     Active Substance: OMAVELOXOLONE
     Indication: Friedreich^s ataxia
     Route: 050
     Dates: start: 20230710

REACTIONS (6)
  - Cerebrovascular accident [Unknown]
  - Speech disorder [Unknown]
  - Dysphonia [Unknown]
  - Aphasia [Unknown]
  - Dyspnoea [Unknown]
  - Cardiac disorder [Unknown]
